FAERS Safety Report 25182208 (Version 2)
Quarter: 2025Q3

REPORT INFORMATION
  Report Type: Report from Study
  Country: US (occurrence: US)
  Receive Date: 20250410
  Receipt Date: 20250731
  Transmission Date: 20251021
  Serious: No
  Sender: SUNOVION
  Company Number: US-SMPA-2025SPA003192AA

PATIENT

DRUGS (9)
  1. ORGOVYX [Suspect]
     Active Substance: RELUGOLIX
     Indication: Prostate cancer
     Dosage: 360 MG, SINGLE
     Route: 048
     Dates: start: 20241228, end: 20241228
  2. ORGOVYX [Suspect]
     Active Substance: RELUGOLIX
     Dosage: 120 MG, QD
     Route: 048
     Dates: start: 20241229
  3. OPDIVO [Concomitant]
     Active Substance: NIVOLUMAB
     Route: 065
  4. YERVOY [Concomitant]
     Active Substance: IPILIMUMAB
     Route: 065
  5. CALCIUM CARBONATE\CHOLECALCIFEROL [Concomitant]
     Active Substance: CALCIUM CARBONATE\CHOLECALCIFEROL
     Route: 065
  6. VITAMIN B COMPLEX [Concomitant]
     Active Substance: CYANOCOBALAMIN\DEXPANTHENOL\NIACINAMIDE\PYRIDOXINE HYDROCHLORIDE\RIBOFLAVIN 5^-PHOSPHATE SODIUM\THIA
     Route: 065
  7. MINERALS\VITAMINS [Concomitant]
     Active Substance: MINERALS\VITAMINS
     Route: 065
  8. ERLEADA [Concomitant]
     Active Substance: APALUTAMIDE
     Route: 065
  9. VITAMINS [Concomitant]
     Active Substance: VITAMINS
     Route: 065

REACTIONS (5)
  - Nasal congestion [Unknown]
  - Dry mouth [Unknown]
  - Lip dry [Unknown]
  - Hot flush [Unknown]
  - Incorrect dose administered [Unknown]

NARRATIVE: CASE EVENT DATE: 20250101
